FAERS Safety Report 6576236-0 (Version None)
Quarter: 2010Q1

REPORT INFORMATION
  Report Type: 
  Country: None (occurrence: None)
  Receive Date: 20100209
  Receipt Date: 20100208
  Transmission Date: 20100710
  Serious: Yes (Other)
  Sender: FDA-Public Use
  Company Number: US-ASTRAZENECA-2009UW04222

PATIENT
  Age: 431 Month
  Sex: Female
  Weight: 103 kg

DRUGS (12)
  1. SEROQUEL [Suspect]
     Indication: INSOMNIA
     Dosage: 100 MG TO 300 MG
     Route: 048
     Dates: start: 20061207, end: 20080301
  2. SEROQUEL [Suspect]
     Dosage: 1/2 TWO FOUR TAB TAB AT BEDTIME
     Route: 048
     Dates: start: 20061219
  3. ABILIFY [Concomitant]
     Dates: start: 20070101
  4. ALPRAZOLAM [Concomitant]
     Dosage: ONE TAB 3-4 AS NEEDED
     Route: 048
     Dates: start: 20060613, end: 20080101
  5. AMITRIPTYLINE HCL [Concomitant]
     Dates: start: 20050220
  6. AMITRIPTYLINE HCL [Concomitant]
     Dosage: 25 MG TO 50 MG
     Dates: start: 20050701, end: 20080101
  7. AMITRIPTYLINE HCL [Concomitant]
     Dosage: 25 MG TWO TAB BY MOUTH AT BEDTIME
     Route: 048
     Dates: start: 20061219
  8. WELLBUTRIN [Concomitant]
     Dosage: 150 MG TO 300 MG
     Dates: start: 20061101, end: 20070601
  9. SERTRALINE HCL [Concomitant]
     Dates: start: 20080101
  10. CLONAZEPAM [Concomitant]
     Dates: start: 20060502, end: 20080101
  11. TRAZODONE [Concomitant]
     Dates: start: 20060504, end: 20061101
  12. FLUOXETINE [Concomitant]
     Dates: start: 20060504, end: 20061001

REACTIONS (16)
  - ARTHRALGIA [None]
  - BACK PAIN [None]
  - BLOOD TRIGLYCERIDES INCREASED [None]
  - DIABETES MELLITUS INADEQUATE CONTROL [None]
  - DIABETIC NEUROPATHY [None]
  - HYPERCHOLESTEROLAEMIA [None]
  - HYPERLIPIDAEMIA [None]
  - MULTIPLE ALLERGIES [None]
  - MUSCLE SPASMS [None]
  - NAUSEA [None]
  - SCIATICA [None]
  - SINUSITIS [None]
  - TYPE 2 DIABETES MELLITUS [None]
  - ULCER [None]
  - UPPER RESPIRATORY TRACT INFECTION [None]
  - VULVOVAGINAL CANDIDIASIS [None]
